FAERS Safety Report 15483168 (Version 1)
Quarter: 2018Q4

REPORT INFORMATION
  Report Type: Spontaneous
  Country: US (occurrence: US)
  Receive Date: 20181010
  Receipt Date: 20181010
  Transmission Date: 20190205
  Serious: Yes (Hospitalization)
  Sender: FDA-Public Use
  Company Number: US-ELI_LILLY_AND_COMPANY-US201810002221

PATIENT
  Age: 55 Year
  Sex: Female

DRUGS (2)
  1. LARTRUVO [Suspect]
     Active Substance: OLARATUMAB
     Indication: UTERINE LEIOMYOSARCOMA
     Dosage: 1 DF, UNKNOWN
     Route: 065
  2. DOXORUBICIN [Suspect]
     Active Substance: DOXORUBICIN
     Indication: UTERINE LEIOMYOSARCOMA
     Dosage: 1 DF, UNKNOWN
     Route: 065

REACTIONS (1)
  - Dyspnoea [Unknown]
